FAERS Safety Report 4393741-6 (Version None)
Quarter: 2004Q3

REPORT INFORMATION
  Report Type: 
  Country: None (occurrence: None)
  Receive Date: 20040709
  Receipt Date: 20040629
  Transmission Date: 20050211
  Serious: Yes (Other)
  Sender: FDA-Public Use
  Company Number: 04P-167-0262108-00

PATIENT
  Age: 55 Year
  Sex: Female

DRUGS (9)
  1. AUGMENTIN [Suspect]
     Route: 048
  2. ADALIMUMAB [Suspect]
     Indication: RHEUMATOID ARTHRITIS
     Dosage: 40MG PER DAY
     Route: 058
  3. FLUOXETINE [Suspect]
     Route: 065
  4. ROFECOXIB [Suspect]
     Route: 065
  5. METHOTREXATE [Suspect]
     Route: 065
  6. CO-DYDRAMOL [Suspect]
     Route: 065
  7. PREMARIN [Suspect]
     Route: 065
  8. AMOXICILLIN AND CLAVULANATE POTASSIUM [Concomitant]
     Route: 065
  9. PARAMOL-118 [Concomitant]
     Route: 065

REACTIONS (1)
  - RETINAL HAEMORRHAGE [None]
